FAERS Safety Report 4727046-8 (Version None)
Quarter: 2005Q3

REPORT INFORMATION
  Report Type: 
  Country: None (occurrence: None)
  Receive Date: 20050726
  Receipt Date: 20050726
  Transmission Date: 20060218
  Serious: Yes (Other)
  Sender: FDA-Public Use
  Company Number: None

PATIENT
  Age: 59 Year
  Sex: Male
  Weight: 115.7 kg

DRUGS (11)
  1. FLUVASTATIN [Suspect]
  2. METFORMIN HCL [Concomitant]
  3. NIACIN (NIASPAN-KOS) [Concomitant]
  4. ACETIC ACID [Concomitant]
  5. NITROGLYCERIN [Concomitant]
  6. METOPROLOL TARTRATE [Concomitant]
  7. TABLET CUTTER [Concomitant]
  8. FLUVASTATIN NA [Concomitant]
  9. ACCU-CHEK COMFORT CURVE-H TEST STRIP [Concomitant]
  10. RAMIPRIL [Concomitant]
  11. GLYBURIDE [Concomitant]

REACTIONS (1)
  - CHEST PAIN [None]
